FAERS Safety Report 6122452-1 (Version None)
Quarter: 2009Q1

REPORT INFORMATION
  Report Type: 
  Country: None (occurrence: None)
  Receive Date: 20090318
  Receipt Date: 20081118
  Transmission Date: 20090719
  Serious: No
  Sender: FDA-Public Use
  Company Number: US-ASTRAZENECA-2008UW18796

PATIENT
  Age: 10955 Day
  Sex: Female
  Weight: 65.8 kg

DRUGS (5)
  1. SYMBICORT [Suspect]
     Route: 055
  2. XOPENEX [Concomitant]
     Indication: BRONCHITIS
     Dosage: TWICE A DAY
     Route: 055
     Dates: start: 20080218, end: 20080222
  3. PULMICORT-100 [Concomitant]
     Indication: BRONCHITIS
     Dosage: TWICE A DAY
     Route: 055
     Dates: start: 20080218, end: 20080222
  4. ZYRTEC [Concomitant]
     Indication: RHINITIS ALLERGIC
     Route: 048
     Dates: start: 20070101
  5. CIPROFLOXACIN HCL [Concomitant]
     Indication: UPPER RESPIRATORY TRACT INFECTION
     Route: 048
     Dates: start: 20080216, end: 20080226

REACTIONS (2)
  - ANXIETY [None]
  - CHEST PAIN [None]
